FAERS Safety Report 5534532-X (Version None)
Quarter: 2007Q4

REPORT INFORMATION
  Report Type: 
  Country: None (occurrence: None)
  Receive Date: 20071204
  Receipt Date: 20071204
  Transmission Date: 20080405
  Serious: Yes (Life-Threatening, Disabling)
  Sender: FDA-Public Use
  Company Number: None

PATIENT
  Age: 74 Year
  Sex: Male

DRUGS (7)
  1. PROTAMINE SULFATE [Suspect]
     Indication: CORONARY ARTERY BYPASS
     Dosage: 450MG ONCE IV
     Route: 042
     Dates: start: 20070709, end: 20070709
  2. PROTAMINE SULFATE [Suspect]
     Indication: HEPARIN NEUTRALISATION THERAPY
     Dosage: 450MG ONCE IV
     Route: 042
     Dates: start: 20070709, end: 20070709
  3. HEPARIN [Concomitant]
  4. APROTINEN [Concomitant]
  5. STANDARD OPERATIVE PROTOCOL ANESTHETICS [Concomitant]
  6. CEPHALOSPORIN [Concomitant]
  7. CARDIPLEGIA SOLUTIONS [Concomitant]

REACTIONS (3)
  - HAEMODYNAMIC INSTABILITY [None]
  - NO THERAPEUTIC RESPONSE [None]
  - POST PROCEDURAL HAEMORRHAGE [None]
